FAERS Safety Report 11283247 (Version 4)
Quarter: 2015Q4

REPORT INFORMATION
  Report Type: Spontaneous
  Country: FR (occurrence: FR)
  Receive Date: 20150720
  Receipt Date: 20151015
  Transmission Date: 20160304
  Serious: Yes (Hospitalization, Other)
  Sender: FDA-Public Use
  Company Number: FR-PFIZER INC-2015237192

PATIENT
  Age: 65 Year
  Sex: Male

DRUGS (6)
  1. IMNOVID [Suspect]
     Active Substance: POMALIDOMIDE
     Indication: PLASMA CELL MYELOMA
     Dosage: 4 MG DAILY, FROM DAY 1 TO DAY 21 EVERY 4 WEEKS
     Route: 048
     Dates: start: 20150115
  2. MEDROL [Suspect]
     Active Substance: METHYLPREDNISOLONE
     Indication: PLASMA CELL MYELOMA
     Dosage: 200 MG DAILY, CYCLIC (FROM DAY 1 TO D4, DAY 9 TO DAY 12, DAY 19 AND DAY 22 OF THE CYCLE)
     Route: 048
     Dates: start: 20150115
  3. INEXIUM [Concomitant]
     Active Substance: ESOMEPRAZOLE
     Dosage: 20MG DAILY IN THE EVENING
  4. ZELITREX [Concomitant]
     Active Substance: VALACYCLOVIR HYDROCHLORIDE
     Dosage: 1500MG DAILY IN THE EVENING
  5. TERALITHE [Concomitant]
     Active Substance: LITHIUM CARBONATE
     Dosage: 400MG DAILY IN THE EVENING
  6. RISPERDAL [Concomitant]
     Active Substance: RISPERIDONE
     Dosage: 0.5 DF DAILY IN THE EVENING

REACTIONS (3)
  - Hyperthermia [Unknown]
  - Immunosuppression [Unknown]
  - Thrombocytopenia [Not Recovered/Not Resolved]

NARRATIVE: CASE EVENT DATE: 201501
